FAERS Safety Report 9833389 (Version 5)
Quarter: 2014Q2

REPORT INFORMATION
  Report Type: Spontaneous
  Country: US (occurrence: US)
  Receive Date: 20140121
  Receipt Date: 20140414
  Transmission Date: 20141212
  Serious: Yes (Death, Hospitalization, Other)
  Sender: FDA-Public Use
  Company Number: US-JNJFOC-20140108581

PATIENT
  Age: 79 Year
  Sex: Female

DRUGS (8)
  1. EXTRA STRENGTH TYLENOL [Suspect]
     Route: 065
  2. EXTRA STRENGTH TYLENOL [Suspect]
     Indication: PRODUCT USED FOR UNKNOWN INDICATION
     Route: 065
     Dates: start: 20111022, end: 20111108
  3. IBUPROFEN [Suspect]
     Indication: BACK PAIN
     Route: 065
  4. SULFA DRUGS [Concomitant]
     Indication: STAPHYLOCOCCAL INFECTION
     Route: 065
  5. OXYCODONE [Concomitant]
     Indication: BACK PAIN
     Route: 065
  6. LISINOPRIL [Concomitant]
     Indication: BLOOD PRESSURE ABNORMAL
     Route: 065
  7. PREDNISONE [Concomitant]
     Indication: PAIN
     Route: 065
  8. PREDNISONE [Concomitant]
     Indication: ARTHRITIS
     Route: 065

REACTIONS (5)
  - Hepatic failure [Fatal]
  - Nephropathy [Fatal]
  - Cardiac failure congestive [Fatal]
  - Arteriosclerosis [Fatal]
  - Cerebral atrophy [Fatal]
